FAERS Safety Report 21121358 (Version 1)
Quarter: 2022Q3

REPORT INFORMATION
  Report Type: Spontaneous
  Country: US (occurrence: None)
  Receive Date: 20220722
  Receipt Date: 20220722
  Transmission Date: 20221026
  Serious: Yes (Death)
  Sender: FDA-Public Use
  Company Number: None

PATIENT
  Sex: Male

DRUGS (6)
  1. TEMOZOLOMIDE [Suspect]
     Active Substance: TEMOZOLOMIDE
     Indication: Brain neoplasm malignant
     Dosage: 4 CAPSULES (400 MG) BY MOUTH AT BEDTIME DAYS 1-5, REPEAT EVERY 28 DAYS. TAKE 1 HOUR BEFORE OR AT LEA
     Route: 048
     Dates: start: 20220602
  2. AMPHET/DEXTR [Concomitant]
  3. DEXAMETHASONE [Concomitant]
     Active Substance: DEXAMETHASONE
  4. LAMOTRIGINE [Concomitant]
  5. NYSTATIN [Concomitant]
  6. PREDNISONE [Concomitant]
     Active Substance: PREDNISONE

REACTIONS (1)
  - Death [None]
